FAERS Safety Report 8193403-3 (Version None)
Quarter: 2012Q1

REPORT INFORMATION
  Report Type: 
  Country: None (occurrence: None)
  Receive Date: 20120308
  Receipt Date: 20120228
  Transmission Date: 20120608
  Serious: Yes (Other)
  Sender: FDA-Public Use
  Company Number: BR-SANOFI-AVENTIS-2012SA013528

PATIENT
  Age: 51 Year
  Sex: Female
  Weight: 89 kg

DRUGS (2)
  1. LANTUS [Suspect]
     Indication: TYPE 2 DIABETES MELLITUS
     Dosage: DOSE:40 IU IN MORNING AND 10 IU AT NIGHTFORM: VIAL
     Route: 058
     Dates: start: 20120101
  2. LANTUS [Suspect]
     Dosage: DOSE:40 IU IN MORNING AND 10 IU AT NIGHTFORM: CARTRIDGE
     Route: 065
     Dates: start: 20120101

REACTIONS (10)
  - SJOGREN'S SYNDROME [None]
  - ARTHRALGIA [None]
  - DRUG ADMINISTRATION ERROR [None]
  - URTICARIA [None]
  - SWELLING [None]
  - LOOSE TOOTH [None]
  - HAEMORRHAGE [None]
  - AMNESIA [None]
  - PRURITUS [None]
  - INSULIN RESISTANCE [None]
